FAERS Safety Report 9118309 (Version 1)
Quarter: 2013Q1

REPORT INFORMATION
  Report Type: Spontaneous
  Country: US (occurrence: None)
  Receive Date: 20130221
  Receipt Date: 20130221
  Transmission Date: 20140127
  Serious: Yes (Other)
  Sender: FDA-Public Use
  Company Number: None

PATIENT
  Age: 55 Year
  Sex: Female
  Weight: 61.24 kg

DRUGS (2)
  1. RESTASIS [Suspect]
     Indication: DERMATITIS
     Dosage: 1 DROP EACH EYE 2 TIMES A DAY OPHTHALMIC
     Route: 047
     Dates: start: 20130212, end: 20130215
  2. RESTASIS [Suspect]
     Indication: DRY EYE
     Dosage: 1 DROP EACH EYE 2 TIMES A DAY OPHTHALMIC
     Route: 047
     Dates: start: 20130212, end: 20130215

REACTIONS (7)
  - Drug hypersensitivity [None]
  - Vision blurred [None]
  - Instillation site pain [None]
  - Instillation site erythema [None]
  - Instillation site reaction [None]
  - Papule [None]
  - Eye inflammation [None]
